FAERS Safety Report 7318551-9 (Version None)
Quarter: 2011Q1

REPORT INFORMATION
  Report Type: 
  Country: None (occurrence: None)
  Receive Date: 20110228
  Receipt Date: 20110224
  Transmission Date: 20110831
  Serious: No
  Sender: FDA-Public Use
  Company Number: US-PFIZER INC-2011041041

PATIENT
  Sex: Female
  Weight: 58.957 kg

DRUGS (3)
  1. CHANTIX [Suspect]
     Indication: SMOKING CESSATION THERAPY
     Dosage: 0.5 MG, 1X/DAY
     Route: 048
     Dates: start: 20110221
  2. CHANTIX [Suspect]
     Dosage: UNK
  3. PROZAC [Concomitant]
     Indication: DEPRESSION
     Dosage: UNK

REACTIONS (1)
  - MIDDLE INSOMNIA [None]
